FAERS Safety Report 9858042 (Version 1)
Quarter: 2014Q1

REPORT INFORMATION
  Report Type: Spontaneous
  Country: US (occurrence: US)
  Receive Date: 20140131
  Receipt Date: 20140131
  Transmission Date: 20141002
  Serious: Yes (Other)
  Sender: FDA-Public Use
  Company Number: US-SHIRE-ALL1-2014-00532

PATIENT
  Age: 12 Year
  Sex: Male
  Weight: 58.96 kg

DRUGS (2)
  1. MAS (MIXED AMPHETAMINE SALTS) [Suspect]
     Indication: ATTENTION DEFICIT/HYPERACTIVITY DISORDER
     Dosage: 20 MG, ONE DOSE
     Route: 048
     Dates: start: 201401, end: 201401
  2. MAS (MIXED AMPHETAMINE SALTS) [Suspect]
     Dosage: 15 MG, 1X/DAY:QD
     Route: 048

REACTIONS (2)
  - Hallucination, auditory [Recovered/Resolved]
  - Feeling abnormal [Recovered/Resolved]
